FAERS Safety Report 4686461-1 (Version None)
Quarter: 2005Q2

REPORT INFORMATION
  Report Type: 
  Country: None (occurrence: None)
  Receive Date: 20050607
  Receipt Date: 20050523
  Transmission Date: 20051028
  Serious: Yes (Other)
  Sender: FDA-Public Use
  Company Number: 2005074293

PATIENT
  Age: 45 Year
  Sex: Female
  Weight: 70.3075 kg

DRUGS (5)
  1. NEURONTIN [Suspect]
     Indication: HEADACHE
     Dosage: 1800 MG (600 MG, 3 IN 1 D), ORAL
     Route: 048
  2. MOTRIN [Suspect]
     Indication: PAIN
     Dosage: (800 MG), ORAL
     Route: 048
  3. HYDROCODONE BITARTRATE [Suspect]
     Indication: ILL-DEFINED DISORDER
  4. MOBIC [Suspect]
     Indication: PAIN
     Dosage: ORAL
     Route: 048
     Dates: start: 20050509
  5. ULTRAM (TRAMADOL HYDROCHLORIDE) ` [Concomitant]

REACTIONS (13)
  - BRAIN DAMAGE [None]
  - CONDITION AGGRAVATED [None]
  - DRUG EFFECT DECREASED [None]
  - DRUG INTERACTION [None]
  - HEADACHE [None]
  - INSOMNIA [None]
  - INTERVERTEBRAL DISC PROTRUSION [None]
  - NERVE COMPRESSION [None]
  - NEUROPATHY [None]
  - PAIN [None]
  - PAIN IN EXTREMITY [None]
  - SHOULDER PAIN [None]
  - TREATMENT NONCOMPLIANCE [None]
